FAERS Safety Report 5848797-8 (Version None)
Quarter: 2008Q3

REPORT INFORMATION
  Report Type: 
  Country: None (occurrence: None)
  Receive Date: 20080818
  Receipt Date: 20080806
  Transmission Date: 20090109
  Serious: Yes (Other)
  Sender: FDA-Public Use
  Company Number: FR-GILEAD-2008-0017803

PATIENT

DRUGS (2)
  1. HEPSERA [Suspect]
     Indication: HEPATITIS B
  2. LAMIVUDINE [Concomitant]
     Indication: CHRONIC HEPATITIS

REACTIONS (1)
  - VIRAL LOAD INCREASED [None]
